FAERS Safety Report 9330842 (Version 4)
Quarter: 2013Q3

REPORT INFORMATION
  Report Type: Spontaneous
  Country: US (occurrence: US)
  Receive Date: 20130605
  Receipt Date: 20130801
  Transmission Date: 20140515
  Serious: Yes (Hospitalization, Other)
  Sender: FDA-Public Use
  Company Number: US-JNJFOC-20130522179

PATIENT
  Age: 55 Year
  Sex: Male
  Weight: 88.45 kg

DRUGS (18)
  1. REMICADE [Suspect]
     Indication: CROHN^S DISEASE
     Route: 042
  2. REMICADE [Suspect]
     Indication: CROHN^S DISEASE
     Dosage: APPROXIMATELY 28 TOTAL INFUSIONS
     Route: 042
     Dates: start: 20080611, end: 20120730
  3. REMICADE [Suspect]
     Indication: CROHN^S DISEASE
     Route: 042
     Dates: start: 20081106, end: 20120307
  4. REMICADE [Suspect]
     Indication: INFLAMMATORY BOWEL DISEASE
     Route: 042
  5. REMICADE [Suspect]
     Indication: INFLAMMATORY BOWEL DISEASE
     Route: 042
     Dates: start: 20081106, end: 20120307
  6. REMICADE [Suspect]
     Indication: INFLAMMATORY BOWEL DISEASE
     Dosage: APPROXIMATELY 28 TOTAL INFUSIONS
     Route: 042
     Dates: start: 20080611, end: 20120730
  7. PREDNISONE [Suspect]
     Indication: PRODUCT USED FOR UNKNOWN INDICATION
     Dosage: DOSE WAS TAPERING
     Route: 065
  8. AZATHIOPRINE [Suspect]
     Indication: CROHN^S DISEASE
     Route: 065
  9. AZATHIOPRINE [Suspect]
     Indication: CROHN^S DISEASE
     Route: 065
     Dates: start: 200108, end: 201209
  10. CALCIUM [Concomitant]
     Route: 048
  11. CALCIUM [Concomitant]
     Route: 048
  12. VITAMIN B12 [Concomitant]
     Route: 059
  13. BIFIDOBACTERIUM INFANTIS [Concomitant]
     Dosage: 4 CAPS
     Route: 065
  14. IRON SULPHATE [Concomitant]
     Route: 065
  15. TYLENOL [Concomitant]
     Route: 048
  16. TYLENOL CODEINE [Concomitant]
     Dosage: 300-30 MG
     Route: 048
  17. IBUPROFEN [Concomitant]
     Route: 065
  18. ALIGN NOS [Concomitant]
     Route: 065

REACTIONS (2)
  - Diffuse large B-cell lymphoma [Recovering/Resolving]
  - Small intestinal obstruction [Recovering/Resolving]
